FAERS Safety Report 5454542-0 (Version None)
Quarter: 2007Q3

REPORT INFORMATION
  Report Type: 
  Country: None (occurrence: None)
  Receive Date: 20070917
  Receipt Date: 20060914
  Transmission Date: 20080115
  Serious: No
  Sender: FDA-Public Use
  Company Number: US-ASTRAZENECA-2006UW16519

PATIENT
  Age: 64 Year
  Sex: Female
  Weight: 54.4 kg

DRUGS (4)
  1. SEROQUEL [Suspect]
     Route: 048
     Dates: start: 20060817
  2. SEROQUEL [Suspect]
     Route: 048
  3. ESTROTEST [Concomitant]
  4. SYNTHROID [Concomitant]

REACTIONS (6)
  - DIZZINESS [None]
  - FEELING ABNORMAL [None]
  - HALLUCINATION [None]
  - MUSCLE SPASMS [None]
  - NAUSEA [None]
  - PHOTOPSIA [None]
